FAERS Safety Report 9308692 (Version 2)
Quarter: 2019Q1

REPORT INFORMATION
  Report Type: Spontaneous
  Country: GB (occurrence: GB)
  Receive Date: 20130524
  Receipt Date: 20190111
  Transmission Date: 20190418
  Serious: Yes (Death, Life-Threatening, Other)
  Sender: FDA-Public Use
  Company Number: PHHY2013GB051317

PATIENT
  Age: 70 Year
  Sex: Female

DRUGS (10)
  1. 5-FLUOROURACIL [Suspect]
     Active Substance: FLUOROURACIL
     Indication: HER-2 POSITIVE BREAST CANCER
     Dosage: 500 MG/M2, CYCLIC (ON DAY 1 OF CYCLE 58)
     Route: 042
     Dates: start: 20130507
  2. CYCLOPHOSPHAMIDE. [Suspect]
     Active Substance: CYCLOPHOSPHAMIDE
     Indication: HER-2 POSITIVE BREAST CANCER
     Dosage: 500 MG/M2, UNK
     Route: 040
  3. HERCEPTIN [Suspect]
     Active Substance: TRASTUZUMAB
     Indication: HER-2 POSITIVE BREAST CANCER
     Dosage: 8 MG/KG, CYCLIC (ON DAY 1 OF CYCLE 1EIGHT CYCLES, EACH LASTING 3 WEEKS, FOR 24 WEEKS)
     Route: 042
  4. EPIRUBICIN [Suspect]
     Active Substance: EPIRUBICIN
     Dosage: 75 MG/M2, CYCLIC (ON DAY 1 OF CYCLE 5-8)
     Route: 042
  5. HERCEPTIN [Suspect]
     Active Substance: TRASTUZUMAB
     Dosage: 6 MG/KG, CYCLIC (ON DAY 1 OF CYCLE 2-8EIGHT CYCLES, EACH LASTING 3 WEEKS, FOR 24 WEEKS)
     Route: 042
  6. OXALIPLATIN. [Concomitant]
     Active Substance: OXALIPLATIN
     Indication: PRODUCT USED FOR UNKNOWN INDICATION
     Route: 065
     Dates: start: 20130507
  7. 5-FLUOROURACIL [Suspect]
     Active Substance: FLUOROURACIL
     Dosage: 500 MG/M2, CYCLIC (ON DAY 1 OF CYCLE 58)
     Route: 040
  8. EPIRUBICIN [Suspect]
     Active Substance: EPIRUBICIN
     Indication: HER-2 POSITIVE BREAST CANCER
     Dosage: 75 MG/M2, CYCLIC (ON DAY 1 OF CYCLE 5-8)
     Route: 040
  9. DOCETAXEL. [Suspect]
     Active Substance: DOCETAXEL
     Indication: HER-2 POSITIVE BREAST CANCER
     Dosage: 75 MG/M2, CYCLIC (ON DAY 1 OF CYCLES 1-4)
     Route: 042
  10. FOLINIC ACID [Concomitant]
     Active Substance: LEUCOVORIN
     Indication: PRODUCT USED FOR UNKNOWN INDICATION
     Route: 065
     Dates: start: 20130507

REACTIONS (1)
  - Acute myocardial infarction [Fatal]

NARRATIVE: CASE EVENT DATE: 20130508
